FAERS Safety Report 5245738-1 (Version None)
Quarter: 2007Q1

REPORT INFORMATION
  Report Type: 
  Country: None (occurrence: None)
  Receive Date: 20070223
  Receipt Date: 20070219
  Transmission Date: 20070707
  Serious: Yes (Other)
  Sender: FDA-Public Use
  Company Number: CA-MERCK-0702CAN00046

PATIENT
  Age: 70 Year
  Sex: Female

DRUGS (5)
  1. COZAAR [Suspect]
     Indication: HYPERTENSION
     Route: 048
     Dates: start: 20061218, end: 20070114
  2. COZAAR [Suspect]
     Route: 048
     Dates: start: 20070115, end: 20070212
  3. COZAAR [Suspect]
     Route: 048
     Dates: start: 20070212
  4. OMEPRAZOLE MAGNESIUM [Concomitant]
     Indication: GASTROOESOPHAGEAL REFLUX DISEASE
     Route: 065
     Dates: start: 20000101
  5. ZOCOR [Concomitant]
     Indication: HYPERCHOLESTEROLAEMIA
     Route: 065
     Dates: start: 20060424

REACTIONS (1)
  - VASCULAR DEMENTIA [None]
